FAERS Safety Report 19176950 (Version 1)
Quarter: 2021Q2

REPORT INFORMATION
  Report Type: Spontaneous
  Country: US (occurrence: US)
  Receive Date: 20210424
  Receipt Date: 20210424
  Transmission Date: 20210717
  Serious: Yes (Hospitalization, Other)
  Sender: FDA-Public Use
  Company Number: US-TEVA-2021-US-1903333

PATIENT
  Age: 58 Year
  Sex: Male

DRUGS (1)
  1. AMPHETAMINE W/DEXTROAMPHETAMINE [Suspect]
     Active Substance: AMPHETAMINE SULFATE\DEXTROAMPHETAMINE
     Indication: ATTENTION DEFICIT HYPERACTIVITY DISORDER
     Dosage: HAS TAKEN THE PRODUCT FOR 10 YEARS
     Route: 065

REACTIONS (6)
  - Hypersomnia [Unknown]
  - Inappropriate schedule of product administration [Unknown]
  - Overdose [Unknown]
  - Loss of personal independence in daily activities [Not Recovered/Not Resolved]
  - Suicidal ideation [Unknown]
  - Hospitalisation [Unknown]
